FAERS Safety Report 13913279 (Version 1)
Quarter: 2017Q3

REPORT INFORMATION
  Report Type: Spontaneous
  Country: US (occurrence: US)
  Receive Date: 20170828
  Receipt Date: 20170828
  Transmission Date: 20171127
  Serious: Yes (Life-Threatening, Other)
  Sender: FDA-Public Use
  Company Number: US-BAUSCH-BL-2017-025402

PATIENT
  Age: 40 Year
  Sex: Male

DRUGS (1)
  1. CLINDAMYCIN. [Suspect]
     Active Substance: CLINDAMYCIN
     Indication: TOXIC SHOCK SYNDROME STREPTOCOCCAL
     Route: 065

REACTIONS (1)
  - Drug ineffective [Not Recovered/Not Resolved]
